FAERS Safety Report 7833007-2 (Version None)
Quarter: 2011Q4

REPORT INFORMATION
  Report Type: 
  Country: None (occurrence: None)
  Receive Date: 20111024
  Receipt Date: 20111011
  Transmission Date: 20120403
  Serious: No
  Sender: FDA-Public Use
  Company Number: US-JNJFOC-20111007394

PATIENT
  Sex: Female
  Weight: 74.84 kg

DRUGS (3)
  1. DURAGESIC-100 [Suspect]
     Route: 062
     Dates: start: 20111001
  2. DURAGESIC-100 [Suspect]
     Indication: NECK PAIN
     Route: 062
     Dates: start: 20111001
  3. DURAGESIC-100 [Suspect]
     Route: 062
     Dates: start: 20111001

REACTIONS (2)
  - PRODUCT ADHESION ISSUE [None]
  - WRONG TECHNIQUE IN DRUG USAGE PROCESS [None]
